FAERS Safety Report 13505112 (Version 6)
Quarter: 2017Q4

REPORT INFORMATION
  Report Type: Report from Study
  Country: JP (occurrence: JP)
  Receive Date: 20170502
  Receipt Date: 20171113
  Transmission Date: 20180320
  Serious: Yes (Hospitalization, Other)
  Sender: FDA-Public Use
  Company Number: JP-SA-2017SA007222

PATIENT
  Age: 61 Year
  Sex: Male
  Weight: 65.9 kg

DRUGS (14)
  1. SAR231893 [Suspect]
     Active Substance: DUPILUMAB
     Indication: DERMATITIS ATOPIC
     Route: 058
     Dates: end: 20170101
  2. ETHYL LOFLAZEPATE [Concomitant]
     Active Substance: ETHYL LOFLAZEPATE
     Indication: PANIC DISORDER
     Route: 048
     Dates: start: 20021217
  3. SEEBRI [Concomitant]
     Active Substance: GLYCOPYRRONIUM
     Indication: ASTHMA
     Route: 055
     Dates: start: 20140110
  4. VOALLA [Concomitant]
     Indication: DERMATITIS ATOPIC
     Route: 061
     Dates: start: 20161216, end: 20170113
  5. SYMBICORT [Concomitant]
     Active Substance: BUDESONIDE\FORMOTEROL FUMARATE DIHYDRATE
     Indication: ASTHMA
     Route: 055
     Dates: start: 20130315, end: 20170226
  6. TALION [Concomitant]
     Active Substance: BEPOTASTINE
     Dosage: 4 TABLETS/DAY
     Route: 048
     Dates: start: 20161216, end: 20170202
  7. LOCOID [Concomitant]
     Active Substance: HYDROCORTISONE BUTYRATE
     Indication: DERMATITIS ATOPIC
     Route: 061
     Dates: start: 20151023
  8. SAR231893 [Suspect]
     Active Substance: DUPILUMAB
     Indication: DERMATITIS ATOPIC
     Route: 058
     Dates: start: 20151023, end: 20151023
  9. AIMIX [Concomitant]
     Active Substance: AMLODIPINE BESYLATE\IRBESARTAN
     Indication: HYPERTENSION
     Route: 048
     Dates: start: 20140106
  10. PROPETO [Concomitant]
     Indication: DERMATITIS ATOPIC
     Route: 061
     Dates: start: 20160311
  11. RINDERON V [Concomitant]
     Active Substance: BETAMETHASONE VALERATE
     Indication: DERMATITIS ATOPIC
     Dosage: LOTION
     Route: 061
     Dates: start: 20160408
  12. PAROXETINE. [Concomitant]
     Active Substance: PAROXETINE
     Route: 065
     Dates: start: 20021217
  13. ATARAX-P [Concomitant]
     Active Substance: HYDROXYZINE HYDROCHLORIDE
     Indication: DERMATITIS ATOPIC
     Route: 048
     Dates: start: 20110318
  14. HIRUDOID [Concomitant]
     Active Substance: GLYCOSAMINOGLYCANS
     Indication: DERMATITIS ATOPIC
     Route: 061
     Dates: start: 20150501, end: 20170113

REACTIONS (2)
  - Small cell lung cancer [Not Recovered/Not Resolved]
  - Lung infection [Recovered/Resolved]

NARRATIVE: CASE EVENT DATE: 20170113
